FAERS Safety Report 18057893 (Version 1)
Quarter: 2020Q3

REPORT INFORMATION
  Report Type: Spontaneous
  Country: US (occurrence: US)
  Receive Date: 20200723
  Receipt Date: 20200723
  Transmission Date: 20201103
  Serious: No
  Sender: FDA-Public Use
  Company Number: US-JNJFOC-20200727374

PATIENT
  Age: 41 Year
  Sex: Female
  Weight: 65.38 kg

DRUGS (1)
  1. WOMENS ROGAINE UNSCENTED [Suspect]
     Active Substance: MINOXIDIL
     Indication: ALOPECIA
     Dosage: I FOLLOW THE DIRECTIONS?LAST USED PRODUCT ON 10?JUL?2020
     Route: 061
     Dates: start: 20200708

REACTIONS (2)
  - Application site rash [Not Recovered/Not Resolved]
  - Application site erythema [Recovered/Resolved]

NARRATIVE: CASE EVENT DATE: 20200709
